FAERS Safety Report 4265036-2 (Version None)
Quarter: 2004Q1

REPORT INFORMATION
  Report Type: 
  Country: None (occurrence: None)
  Receive Date: 20040105
  Receipt Date: 20031225
  Transmission Date: 20041129
  Serious: Yes (Other)
  Sender: FDA-Public Use
  Company Number: 200313853GDS

PATIENT
  Age: 48 Year
  Sex: Female

DRUGS (4)
  1. ASPIRIN [Suspect]
     Indication: ANTIPHOSPHOLIPID SYNDROME
  2. CYCLOSPORINE [Suspect]
     Indication: ANTIPHOSPHOLIPID SYNDROME
  3. TICLOPIDINE HCL [Suspect]
     Indication: ANTIPHOSPHOLIPID SYNDROME
  4. PREDNISOLONE [Suspect]

REACTIONS (3)
  - GASTROINTESTINAL NECROSIS [None]
  - PERITONITIS [None]
  - PLATELET COUNT DECREASED [None]
